FAERS Safety Report 7787176-3 (Version None)
Quarter: 2011Q3

REPORT INFORMATION
  Report Type: 
  Country: None (occurrence: None)
  Receive Date: 20110929
  Receipt Date: 20110920
  Transmission Date: 20111222
  Serious: Yes (Disabling)
  Sender: FDA-Public Use
  Company Number: US-US-EMD SERONO, INC.-7081159

PATIENT
  Sex: Female

DRUGS (1)
  1. REBIF [Suspect]
     Indication: MULTIPLE SCLEROSIS
     Route: 058
     Dates: start: 20110509

REACTIONS (6)
  - VERTIGO [None]
  - EYE PAIN [None]
  - SINUS HEADACHE [None]
  - DEAFNESS BILATERAL [None]
  - FACIAL PAIN [None]
  - EAR PAIN [None]
